FAERS Safety Report 8771763 (Version 1)
Quarter: 2012Q4

REPORT INFORMATION
  Report Type: 
  Country: US (occurrence: US)
  Receive Date: 20120905
  Receipt Date: 20120905
  Transmission Date: 20130627
  Serious: Yes (Death)
  Sender: FDA-Public Use
  Company Number: US-ROCHE-1107083

PATIENT
  Sex: Female

DRUGS (7)
  1. TARCEVA [Suspect]
     Indication: MALIGNANT RESPIRATORY TRACT NEOPLASM
     Route: 065
     Dates: start: 20050906, end: 20051018
  2. AVASTIN [Suspect]
     Indication: MALIGNANT RESPIRATORY TRACT NEOPLASM
     Route: 065
     Dates: start: 20051122
  3. IRINOTECAN [Concomitant]
     Route: 065
     Dates: start: 20051018
  4. TAXOL [Concomitant]
     Route: 065
     Dates: start: 20051122
  5. CARBOPLATIN [Concomitant]
     Dosage: 3 cycles
     Route: 065
     Dates: start: 20040803, end: 20040925
  6. CARBOPLATIN [Concomitant]
     Dosage: 6 cycles
     Route: 065
     Dates: start: 20041026, end: 20050225
  7. CARBOPLATIN [Concomitant]
     Route: 065
     Dates: start: 20051122

REACTIONS (2)
  - Death [Fatal]
  - Disease progression [Unknown]
